FAERS Safety Report 22084836 (Version 1)
Quarter: 2023Q1

REPORT INFORMATION
  Report Type: Spontaneous
  Country: US (occurrence: US)
  Receive Date: 20230310
  Receipt Date: 20230310
  Transmission Date: 20230417
  Serious: No
  Sender: FDA-Public Use
  Company Number: US-PFIZER INC-202300096806

PATIENT
  Age: 82 Year
  Sex: Female
  Weight: 53.52 kg

DRUGS (1)
  1. PAXLOVID [Suspect]
     Active Substance: NIRMATRELVIR\RITONAVIR
     Indication: COVID-19 treatment
     Dosage: [PF-07321332 300 MG]/[RITONAVIR 100 MG], 2X/DAY
     Route: 048
     Dates: start: 20230222

REACTIONS (7)
  - Ear swelling [Recovered/Resolved]
  - Erythema [Recovered/Resolved]
  - Ear pruritus [Recovered/Resolved]
  - Ear pain [Recovered/Resolved]
  - Body temperature increased [Unknown]
  - COVID-19 [Not Recovered/Not Resolved]
  - Disease recurrence [Not Recovered/Not Resolved]
